FAERS Safety Report 9704653 (Version 2)
Quarter: 2013Q4

REPORT INFORMATION
  Report Type: Spontaneous
  Country: US (occurrence: US)
  Receive Date: 20131122
  Receipt Date: 20131202
  Transmission Date: 20140711
  Serious: No
  Sender: FDA-Public Use
  Company Number: US-GILEAD-2013-0088248

PATIENT
  Sex: Female

DRUGS (3)
  1. LETAIRIS [Suspect]
     Indication: PRODUCT USED FOR UNKNOWN INDICATION
     Dosage: 10 MG, QD
     Route: 048
     Dates: start: 20110823, end: 201311
  2. REMODULIN [Concomitant]
     Indication: COR PULMONALE CHRONIC
  3. ADCIRCA [Concomitant]

REACTIONS (1)
  - Swelling [Recovered/Resolved]
